FAERS Safety Report 7690993-1 (Version None)
Quarter: 2011Q3

REPORT INFORMATION
  Report Type: 
  Country: None (occurrence: None)
  Receive Date: 20110812
  Receipt Date: 20110804
  Transmission Date: 20111222
  Serious: Yes (Death)
  Sender: FDA-Public Use
  Company Number: 843193

PATIENT
  Age: 60 Year
  Sex: Female

DRUGS (6)
  1. ONDANSETRON [Concomitant]
  2. CHLORPHENIRAMINE MALEATE [Concomitant]
  3. CISPLATIN [Concomitant]
  4. DEXAMETHASONE [Concomitant]
  5. TAXOL [Suspect]
     Indication: CERVIX CARCINOMA
     Dosage: 312 MG MILLIGRAM(S),   , INTRAVENOUS
     Route: 042
     Dates: start: 20101123, end: 20101221
  6. RANITIDINE [Concomitant]

REACTIONS (1)
  - DEATH [None]
